FAERS Safety Report 22529675 (Version 1)
Quarter: 2023Q2

REPORT INFORMATION
  Report Type: Report from Study
  Country: AU (occurrence: AU)
  Receive Date: 20230607
  Receipt Date: 20230607
  Transmission Date: 20230722
  Serious: Yes (Other)
  Sender: FDA-Public Use
  Company Number: AU-JNJFOC-20230361718

PATIENT
  Sex: Female

DRUGS (4)
  1. REMICADE [Suspect]
     Active Substance: INFLIXIMAB
     Indication: Colitis ulcerative
     Route: 041
  2. REMICADE [Suspect]
     Active Substance: INFLIXIMAB
     Route: 041
  3. REMICADE [Suspect]
     Active Substance: INFLIXIMAB
     Dosage: SHE HAS 6 VIALS THAT ARE PBS(PHARMACEUTICAL BENEFIT SCHEME) FOR 8/52 INFUSIONS BUT WE WOULD LIKE 12
     Route: 041
  4. AZATHIOPRINE [Concomitant]
     Active Substance: AZATHIOPRINE

REACTIONS (4)
  - Colitis ulcerative [Unknown]
  - Drug level decreased [Unknown]
  - Therapeutic response decreased [Unknown]
  - Off label use [Unknown]
